FAERS Safety Report 9773125 (Version 1)
Quarter: 2013Q4

REPORT INFORMATION
  Report Type: Spontaneous
  Country: US (occurrence: None)
  Receive Date: 20131217
  Receipt Date: 20131217
  Transmission Date: 20140711
  Serious: Yes (Hospitalization, Other)
  Sender: FDA-Public Use
  Company Number: DSU-2013-05307

PATIENT
  Age: 62 Year
  Sex: Female

DRUGS (7)
  1. AZOR [Suspect]
     Indication: HYPERTENSION
     Dosage: 1 IN 21 D
     Route: 048
     Dates: end: 20131019
  2. 5-FU [Suspect]
     Indication: METASTATIC GASTRIC CANCER
  3. CDDP [Suspect]
     Indication: METASTATIC GASTRIC CANCER
     Dates: start: 20130308, end: 20130308
  4. ZOFRAN (ONDANSETRON HYDROCHLORIDE) (TABLET) [Concomitant]
  5. NEXIUM (ESOMEPRAZOLE MAGNESIUM) (TABLET) (ESOMEPRAZOLE MAGNESIUM) [Concomitant]
  6. INFLUENZA VACCINE (INFLUENZA VACCINE) (INFLUENZA VACCINE) [Concomitant]
  7. SALT AND SODA MOUTH RINSE [Concomitant]

REACTIONS (11)
  - Blood creatinine increased [None]
  - Dehydration [None]
  - Asthenia [None]
  - Nausea [None]
  - Vomiting [None]
  - Syncope [None]
  - Hypotension [None]
  - Hypophagia [None]
  - Haemoglobin decreased [None]
  - Haematocrit decreased [None]
  - Sinus bradycardia [None]
